FAERS Safety Report 12585420 (Version 1)
Quarter: 2016Q3

REPORT INFORMATION
  Report Type: Spontaneous
  Country: US (occurrence: US)
  Receive Date: 20160724
  Receipt Date: 20160724
  Transmission Date: 20161109
  Serious: No
  Sender: FDA-Public Use
  Company Number: US-ASTRAZENECA-2016SE59509

PATIENT
  Age: 38 Year
  Sex: Female
  Weight: 90.7 kg

DRUGS (6)
  1. METOPROLOL ER [Suspect]
     Active Substance: METOPROLOL SUCCINATE
     Indication: HYPERTENSION
     Dosage: DRRE (NON AZ PRODUCT), 100 MG TWO TIMES A DAY
     Route: 048
     Dates: start: 1997
  2. NEXIUM [Suspect]
     Active Substance: ESOMEPRAZOLE MAGNESIUM
     Indication: GASTROOESOPHAGEAL REFLUX DISEASE
     Route: 048
     Dates: start: 2002, end: 2013
  3. PROMETHAZINE [Concomitant]
     Active Substance: PROMETHAZINE\PROMETHAZINE HYDROCHLORIDE
     Indication: NAUSEA
     Dosage: 25.0MG UNKNOWN
     Dates: start: 1995
  4. PEPPERMINT. [Concomitant]
     Active Substance: PEPPERMINT
  5. FLECAINIDE [Concomitant]
     Active Substance: FLECAINIDE
     Indication: MIGRAINE
     Route: 048
     Dates: start: 2002
  6. CYMBALTA [Concomitant]
     Active Substance: DULOXETINE HYDROCHLORIDE
     Indication: FIBROMYALGIA
     Route: 048
     Dates: start: 2000

REACTIONS (8)
  - Nausea [Unknown]
  - Hand fracture [Unknown]
  - Osteopenia [Unknown]
  - Rib fracture [Unknown]
  - Gastrooesophageal reflux disease [Unknown]
  - Therapy cessation [Unknown]
  - Foot fracture [Unknown]
  - Gastrointestinal disorder [Unknown]

NARRATIVE: CASE EVENT DATE: 2001
